FAERS Safety Report 5667673-7 (Version None)
Quarter: 2008Q1

REPORT INFORMATION
  Report Type: 
  Country: None (occurrence: None)
  Receive Date: 20080315
  Receipt Date: 20080201
  Transmission Date: 20080703
  Serious: No
  Sender: FDA-Public Use
  Company Number: US-ABBOTT-08P-163-0436779-00

PATIENT
  Sex: Female
  Weight: 72.64 kg

DRUGS (1)
  1. HUMIRA [Suspect]
     Indication: CROHN'S DISEASE
     Dates: start: 20070703, end: 20080108

REACTIONS (18)
  - ABDOMINAL DISTENSION [None]
  - BRONCHITIS [None]
  - CHEST PAIN [None]
  - COUGH [None]
  - DERMATITIS [None]
  - DIZZINESS [None]
  - ERYTHEMA [None]
  - FUNGAL INFECTION [None]
  - LACRIMATION INCREASED [None]
  - LOSS OF CONSCIOUSNESS [None]
  - MUSCULOSKELETAL STIFFNESS [None]
  - OEDEMA PERIPHERAL [None]
  - PAIN IN EXTREMITY [None]
  - PRURITUS [None]
  - RHINORRHOEA [None]
  - SKIN DISCOLOURATION [None]
  - SKIN DISORDER [None]
  - WHEEZING [None]
